FAERS Safety Report 8471970-X (Version None)
Quarter: 2012Q2

REPORT INFORMATION
  Report Type: 
  Country: None (occurrence: None)
  Receive Date: 20120627
  Receipt Date: 20120621
  Transmission Date: 20120825
  Serious: Yes (Death, Other)
  Sender: FDA-Public Use
  Company Number: US-BAYER-201038723NA

PATIENT
  Age: 64 Year
  Sex: Male
  Weight: 61.224 kg

DRUGS (32)
  1. LEVOTHYROXINE [Concomitant]
  2. NIMBEX [Concomitant]
     Dosage: UNK
     Dates: start: 20041217
  3. ZIAC [Concomitant]
     Dosage: 10 MG, ONCE
     Route: 048
  4. NITROGLYCERIN [Concomitant]
     Dosage: 0.4 MG, PRN
  5. FRESH FROZEN PLASMA [Concomitant]
     Dosage: 1 U, UNK
  6. KEFLEX [Concomitant]
  7. ZOFRAN [Concomitant]
     Dosage: 4 MG, UNK
     Route: 042
     Dates: start: 20041217
  8. POTASSIUM CHLORIDE [Concomitant]
     Route: 042
  9. HUMULIN 70/30 [Concomitant]
  10. RED BLOOD CELLS [Concomitant]
     Dosage: 2 U, UNK
  11. VERSED [Concomitant]
     Dosage: 2 MG, UNK
     Route: 042
     Dates: start: 20041217
  12. FENTANYL [Concomitant]
     Dosage: UNK
     Dates: start: 20041217
  13. VANCOMYCIN [Concomitant]
     Dosage: UNK
     Dates: start: 20041217
  14. HYDRALAZINE HYDROCHLORIDE [Concomitant]
  15. PROTAMINE SULFATE [Concomitant]
     Dosage: UNK
     Dates: start: 20041217
  16. LIDOCAINE [Concomitant]
     Dosage: UNK
     Dates: start: 20041217
  17. TRASYLOL [Suspect]
  18. METOPROLOL TARTRATE [Concomitant]
  19. LASIX [Concomitant]
  20. NORVASC [Concomitant]
  21. ISOSORBIDE [Concomitant]
  22. PLATELETS [Concomitant]
  23. ETOMIDATE [Concomitant]
     Dosage: UNK
     Dates: start: 20041217
  24. HEPARIN [Concomitant]
     Dosage: UNK
     Dates: start: 20041217
  25. ISORDIL [Concomitant]
  26. CALCIUM CHLORIDE [Concomitant]
     Dosage: UNK
     Dates: start: 20041217
  27. MANNITOL [Concomitant]
     Dosage: 25 G, UNK
     Route: 042
     Dates: start: 20041217, end: 20041217
  28. INSULIN [Concomitant]
     Dosage: UNK
     Route: 042
     Dates: start: 20041217, end: 20041217
  29. TRASYLOL [Suspect]
     Indication: CORONARY ARTERY BYPASS
     Dosage: LOADING DOSE:  25CC/HR
     Route: 042
     Dates: start: 20041217
  30. CLONIDINE [Concomitant]
  31. NITROGLYCERIN [Concomitant]
  32. SODIUM BICARBONATE [Concomitant]
     Dosage: UNK
     Dates: start: 20041217, end: 20041217

REACTIONS (12)
  - EMOTIONAL DISTRESS [None]
  - PAIN [None]
  - ANXIETY [None]
  - INJURY [None]
  - RENAL INJURY [None]
  - MULTI-ORGAN FAILURE [None]
  - UNEVALUABLE EVENT [None]
  - DEATH [None]
  - RENAL FAILURE [None]
  - STRESS [None]
  - FEAR [None]
  - RENAL IMPAIRMENT [None]
